FAERS Safety Report 5449613-9 (Version None)
Quarter: 2007Q3

REPORT INFORMATION
  Report Type: 
  Country: None (occurrence: None)
  Receive Date: 20070912
  Receipt Date: 20070904
  Transmission Date: 20080115
  Serious: Yes (Hospitalization, Other)
  Sender: FDA-Public Use
  Company Number: PHBS2007AT14587

PATIENT
  Age: 52 Year
  Sex: Male

DRUGS (2)
  1. IMATINIB MESYLATE [Suspect]
     Indication: CHRONIC MYELOID LEUKAEMIA
     Dosage: 600 MG/D
     Route: 048
     Dates: start: 20040901
  2. IMATINIB MESYLATE [Suspect]
     Dosage: 400 MG/D
     Route: 048
     Dates: start: 20020101, end: 20040901

REACTIONS (7)
  - CENTRAL NERVOUS SYSTEM LEUKAEMIA [None]
  - COORDINATION ABNORMAL [None]
  - FISTULA [None]
  - HEADACHE [None]
  - PARAESTHESIA [None]
  - PARESIS [None]
  - SURGERY [None]
